FAERS Safety Report 16809545 (Version 5)
Quarter: 2019Q3

REPORT INFORMATION
  Report Type: Report from Study
  Country: None (occurrence: ES)
  Receive Date: 20190916
  Receipt Date: 20190927
  Transmission Date: 20191005
  Serious: Yes (Death, Other)
  Sender: FDA-Public Use
  Company Number: ES-ABBVIE-19K-144-2922393-00

PATIENT
  Age: 73 Year
  Sex: Male
  Weight: 80 kg

DRUGS (1)
  1. DUODOPA [Suspect]
     Active Substance: CARBIDOPA\LEVODOPA
     Indication: PARKINSON^S DISEASE
     Route: 050
     Dates: start: 20190909, end: 201909

REACTIONS (9)
  - Pallor [Unknown]
  - Lacunar infarction [Unknown]
  - Hyperglycaemia [Recovering/Resolving]
  - Coma [Unknown]
  - Acute myocardial infarction [Recovering/Resolving]
  - Pyrexia [Unknown]
  - Death [Fatal]
  - Pulmonary embolism [Unknown]
  - Angina pectoris [Unknown]

NARRATIVE: CASE EVENT DATE: 201909
